FAERS Safety Report 4567472-3 (Version None)
Quarter: 2005Q1

REPORT INFORMATION
  Report Type: 
  Country: None (occurrence: None)
  Receive Date: 20050127
  Receipt Date: 20050117
  Transmission Date: 20050727
  Serious: Yes (Hospitalization)
  Sender: FDA-Public Use
  Company Number: 2005013622

PATIENT
  Age: 72 Year
  Sex: Female

DRUGS (3)
  1. CELEBREX [Suspect]
     Indication: OSTEOARTHRITIS
     Dosage: ORAL
     Route: 048
     Dates: end: 20041013
  2. LORAZEPAM [Concomitant]
  3. GINKGO BILOBA (GINKGO BILOBA) [Concomitant]

REACTIONS (5)
  - ABDOMINAL PAIN [None]
  - COLITIS [None]
  - DIVERTICULUM [None]
  - POLYP [None]
  - RECTAL HAEMORRHAGE [None]
